FAERS Safety Report 8932466 (Version 1)
Quarter: 2012Q4

REPORT INFORMATION
  Report Type: Spontaneous
  Country: US (occurrence: None)
  Receive Date: 20121128
  Receipt Date: 20121128
  Transmission Date: 20130627
  Serious: Yes (Life-Threatening, Hospitalization, Congenital Anomaly, Other)
  Sender: FDA-Public Use
  Company Number: None

PATIENT
  Age: 41 Year
  Sex: Female
  Weight: 58.51 kg

DRUGS (2)
  1. CORTISONE [Suspect]
  2. BENADRYL [Suspect]

REACTIONS (4)
  - Rash [None]
  - Throat tightness [None]
  - Chest pain [None]
  - Dyspnoea [None]
